FAERS Safety Report 4529696-0 (Version None)
Quarter: 2004Q4

REPORT INFORMATION
  Report Type: 
  Country: None (occurrence: None)
  Receive Date: 20041214
  Receipt Date: 20041201
  Transmission Date: 20050328
  Serious: Yes (Life-Threatening, Hospitalization)
  Sender: FDA-Public Use
  Company Number: 1781-104

PATIENT
  Age: 68 Year
  Sex: Female
  Weight: 75.7507 kg

DRUGS (2)
  1. ACETYLCYSTEINE SOLUTION, 20%, 4 ML VIAL [Suspect]
     Indication: PROPHYLAXIS
     Dosage: 600 MG ORALLY ONCE
     Dates: start: 20041130
  2. AMERICAN REGENT INC. [Suspect]

REACTIONS (7)
  - BLOOD PRESSURE IMMEASURABLE [None]
  - BRONCHOSPASM [None]
  - COLD SWEAT [None]
  - COMA [None]
  - DYSPNOEA [None]
  - HYPOTENSION [None]
  - OXYGEN SATURATION DECREASED [None]
